FAERS Safety Report 18723065 (Version 1)
Quarter: 2021Q1

REPORT INFORMATION
  Report Type: Spontaneous
  Country: US (occurrence: US)
  Receive Date: 20210109
  Receipt Date: 20210109
  Transmission Date: 20210419
  Serious: Yes (Other)
  Sender: FDA-Public Use
  Company Number: None

PATIENT
  Age: 5 Year
  Sex: Male
  Weight: 23.5 kg

DRUGS (7)
  1. DEXAMETHASONE. [Concomitant]
     Active Substance: DEXAMETHASONE
     Dates: start: 20210108, end: 20210109
  2. ALBUTEROL. [Concomitant]
     Active Substance: ALBUTEROL
     Dates: start: 20210105, end: 20210109
  3. DEXTROSE 5%?NACL 0.45% WITH KCL 20 MEQ/L INFUSION [Concomitant]
     Dates: start: 20210105, end: 20210109
  4. ACETAMINOPHEN. [Concomitant]
     Active Substance: ACETAMINOPHEN
     Dates: start: 20210105, end: 20210109
  5. REMDESIVIR. [Suspect]
     Active Substance: REMDESIVIR
     Indication: COVID-19
     Route: 041
     Dates: start: 20210106, end: 20210108
  6. MONTELUKAST [Concomitant]
     Active Substance: MONTELUKAST SODIUM
     Dates: start: 20210107, end: 20210109
  7. FLUTICASONE?SALMETEROL (ADVAIR HFA) 115?21 MCG/ACT INHALER [Concomitant]
     Dates: start: 20210107, end: 20210109

REACTIONS (2)
  - Tremor [None]
  - Infusion related reaction [None]

NARRATIVE: CASE EVENT DATE: 20210108
